FAERS Safety Report 8946767 (Version 1)
Quarter: 2012Q4

REPORT INFORMATION
  Report Type: 
  Country: US (occurrence: US)
  Receive Date: 20121205
  Receipt Date: 20121205
  Transmission Date: 20130627
  Serious: Yes (Other)
  Sender: FDA-Public Use
  Company Number: US-B.I. PHARMACEUTICALS,INC./RIDGEFIELD-2012-BI-01858BP

PATIENT
  Age: 62 Year
  Sex: Male

DRUGS (3)
  1. PRADAXA [Suspect]
     Indication: ATRIAL FIBRILLATION
     Dosage: 300 mg
     Route: 048
     Dates: start: 201211, end: 201211
  2. DIGOXIN [Concomitant]
  3. VERAPAMIL [Concomitant]

REACTIONS (1)
  - Rectal haemorrhage [Recovered/Resolved]
